FAERS Safety Report 10396838 (Version 1)
Quarter: 2014Q1

REPORT INFORMATION
  Report Type: Spontaneous
  Country: US (occurrence: None)
  Receive Date: 20130815
  Receipt Date: 20130815
  Transmission Date: 20141002
  Serious: Yes (Other)
  Sender: FDA-Public Use
  Company Number: ADR-2013-00437

PATIENT
  Sex: Female

DRUGS (2)
  1. BACLOFEN INTRATHECAL [Suspect]
     Indication: MUSCLE SPASTICITY
     Dosage: 210 MCG/DAY
  2. ORAL BACLOFEN 20 MG [Concomitant]

REACTIONS (6)
  - Pruritus [None]
  - Muscle spasms [None]
  - Gait disturbance [None]
  - Clonus [None]
  - Drug withdrawal syndrome [None]
  - Irritability [None]
